FAERS Safety Report 17756369 (Version 1)
Quarter: 2020Q2

REPORT INFORMATION
  Report Type: Spontaneous
  Country: FR (occurrence: FR)
  Receive Date: 20200507
  Receipt Date: 20200507
  Transmission Date: 20200714
  Serious: Yes (Other)
  Sender: FDA-Public Use
  Company Number: FR-CADILA HEALTHCARE LIMITED-FR-ZYDUS-021565

PATIENT

DRUGS (3)
  1. PHLOROGLUCINOL HYDRATE,PHLOROGLUCINOL (TRIMETHYL ETHER DU) [Concomitant]
     Indication: PROCEDURAL PAIN
  2. TRAMADOL. [Suspect]
     Active Substance: TRAMADOL
     Indication: PROCEDURAL PAIN
     Dosage: 100 MILLIGRAM
     Route: 048
     Dates: start: 20171113, end: 20171113
  3. MACROGOL 4000,POLYOXYETHYLENE (75) [Concomitant]
     Indication: PRODUCT USED FOR UNKNOWN INDICATION

REACTIONS (3)
  - Fall [Recovered/Resolved]
  - Vertigo [Recovered/Resolved]
  - Vomiting [Recovered/Resolved]

NARRATIVE: CASE EVENT DATE: 20171113
